FAERS Safety Report 4751422-0 (Version None)
Quarter: 2005Q3

REPORT INFORMATION
  Report Type: 
  Country: None (occurrence: None)
  Receive Date: 20050824
  Receipt Date: 20050812
  Transmission Date: 20060218
  Serious: Yes (Death, Other)
  Sender: FDA-Public Use
  Company Number: 200512537EU

PATIENT
  Age: 82 Year
  Sex: Female

DRUGS (4)
  1. ENOXAPARIN SODIUM [Suspect]
     Indication: ANGINA PECTORIS
     Dates: start: 20050715, end: 20050715
  2. PLAVIX [Suspect]
     Indication: ANGINA PECTORIS
     Dates: start: 20050715, end: 20050715
  3. ALBYL-E [Suspect]
     Indication: DRUG USE FOR UNKNOWN INDICATION
     Route: 048
     Dates: end: 20050717
  4. BREXIDOL [Suspect]
     Indication: DRUG USE FOR UNKNOWN INDICATION
     Route: 048
     Dates: end: 20050717

REACTIONS (4)
  - GASTRIC ULCER HAEMORRHAGE [None]
  - GASTRIC ULCER PERFORATION [None]
  - HAEMATEMESIS [None]
  - PERITONITIS [None]
